FAERS Safety Report 4830823-6 (Version None)
Quarter: 2005Q4

REPORT INFORMATION
  Report Type: 
  Country: None (occurrence: None)
  Receive Date: 20051117
  Receipt Date: 20051115
  Transmission Date: 20060501
  Serious: Yes (Death, Life-Threatening, Hospitalization)
  Sender: FDA-Public Use
  Company Number: US-MERCK-0511USA02329

PATIENT
  Sex: Female

DRUGS (2)
  1. FOSAMAX [Suspect]
     Indication: OSTEOPOROSIS
     Route: 048
  2. [THERAPY UNSPECIFIED] [Concomitant]
     Route: 065

REACTIONS (9)
  - ADVERSE EVENT [None]
  - ARTERIAL INJURY [None]
  - ARTERIAL RUPTURE [None]
  - CARDIAC TAMPONADE [None]
  - CATHETER RELATED COMPLICATION [None]
  - DIALYSIS [None]
  - INTESTINAL PERFORATION [None]
  - LACERATION [None]
  - RENAL FAILURE [None]
